FAERS Safety Report 9469450 (Version 2)
Quarter: 2013Q3

REPORT INFORMATION
  Report Type: Spontaneous
  Country: US (occurrence: US)
  Receive Date: 20130822
  Receipt Date: 20130915
  Transmission Date: 20140515
  Serious: No
  Sender: FDA-Public Use
  Company Number: US-AMGEN-USASP2013057964

PATIENT
  Age: 70 Year
  Sex: Female

DRUGS (10)
  1. PROLIA [Suspect]
     Indication: OSTEOPOROSIS POSTMENOPAUSAL
     Dosage: UNK
     Route: 065
  2. KLOR-CON [Concomitant]
  3. SERTRALINE [Concomitant]
  4. GEMFIBROZIL [Concomitant]
  5. AMLODIPINE [Concomitant]
  6. LEVOTHYROXINE [Concomitant]
  7. CHLORTHALIDONE [Concomitant]
  8. CALCIUM WITH VITAMIN D             /00944201/ [Concomitant]
  9. OMEGA 3                            /01333901/ [Concomitant]
  10. GLUCOSAMINE CHONDROITIN            /01430901/ [Concomitant]

REACTIONS (5)
  - Musculoskeletal chest pain [Recovered/Resolved]
  - Arthralgia [Unknown]
  - Sleep disorder due to a general medical condition [Unknown]
  - Mobility decreased [Unknown]
  - Inappropriate schedule of drug administration [Unknown]
